FAERS Safety Report 8912828 (Version 3)
Quarter: 2013Q1

REPORT INFORMATION
  Report Type: Spontaneous
  Country: CO (occurrence: CO)
  Receive Date: 20121116
  Receipt Date: 20130221
  Transmission Date: 20140127
  Serious: Yes (Other)
  Sender: FDA-Public Use
  Company Number: CO-AMGEN-COLSP2012072575

PATIENT
  Age: 57 Year
  Sex: Male

DRUGS (13)
  1. ENBREL [Suspect]
     Indication: ANKYLOSING SPONDYLITIS
     Dosage: 50 MG, WEEKLY
     Route: 058
     Dates: start: 201108, end: 201206
  2. ENBREL [Suspect]
     Dosage: UNK
  3. MESALAZINE [Concomitant]
     Indication: COLITIS ULCERATIVE
     Dosage: 500 MG, 6X/DAY
     Route: 048
     Dates: start: 2005
  4. PREDNISOLON                        /00016201/ [Concomitant]
     Indication: ULCER HAEMORRHAGE
     Dosage: 0.5 MG, 1X/DAY
     Route: 048
     Dates: start: 2007
  5. LOPERAMIDE [Concomitant]
     Dosage: 2 MG, UNK
     Route: 065
     Dates: start: 2005
  6. OMEPRAZOL                          /00661201/ [Concomitant]
     Dosage: 20 MG, UNK
     Dates: start: 2005
  7. FERROUS SULFATE [Concomitant]
     Dosage: 300 MG, UNK
     Dates: start: 2005
  8. CALCITRIOL [Concomitant]
     Dosage: 50 MG, UNK
     Dates: start: 2009
  9. CALCIUM WITH VITAMIN D             /01233101/ [Concomitant]
     Dosage: UNK
     Route: 065
     Dates: start: 201206
  10. METOCLOPRAMIDE [Concomitant]
     Dosage: 10 MG, UNK
     Route: 065
     Dates: start: 201208
  11. PYRIDOXINE [Concomitant]
     Dosage: 50 MG, UNK
     Route: 065
     Dates: start: 201208
  12. ATORVASTATIN [Concomitant]
     Dosage: 20 MG, UNK
     Route: 065
     Dates: start: 201208
  13. ASA [Concomitant]
     Dosage: 100 MG, UNK

REACTIONS (7)
  - Off label use [Unknown]
  - Decreased immune responsiveness [Recovered/Resolved]
  - Depressed mood [Recovered/Resolved]
  - Underweight [Recovered/Resolved]
  - Hyperhidrosis [Recovered/Resolved]
  - Fatigue [Recovered/Resolved]
  - Tuberculosis [Recovered/Resolved]
